FAERS Safety Report 6078993-9 (Version None)
Quarter: 2009Q1

REPORT INFORMATION
  Report Type: 
  Country: None (occurrence: None)
  Receive Date: 20090216
  Receipt Date: 20090205
  Transmission Date: 20090719
  Serious: Yes (Hospitalization, Other)
  Sender: FDA-Public Use
  Company Number: DE-ELI_LILLY_AND_COMPANY-DE200901002536

PATIENT
  Sex: Male
  Weight: 126 kg

DRUGS (3)
  1. BYETTA [Suspect]
     Indication: ABDOMINAL PAIN UPPER
     Dosage: 10 UG, DAILY (1/D)
     Route: 058
     Dates: start: 20080624, end: 20080626
  2. BYETTA [Suspect]
     Dosage: 10 UG, 2/D
     Route: 058
     Dates: start: 20080627, end: 20080723
  3. RAMIPRIL [Concomitant]
     Dosage: 10 MG, DAILY (1/D)
     Route: 065

REACTIONS (1)
  - OEDEMATOUS PANCREATITIS [None]
